FAERS Safety Report 13826619 (Version 1)
Quarter: 2017Q3

REPORT INFORMATION
  Report Type: Spontaneous
  Country: JP (occurrence: JP)
  Receive Date: 20170802
  Receipt Date: 20170802
  Transmission Date: 20171127
  Serious: No
  Sender: FDA-Public Use
  Company Number: JP-ALLERGAN-1730730US

PATIENT
  Sex: Male

DRUGS (2)
  1. ASENAPINE MALEATE - BP [Suspect]
     Active Substance: ASENAPINE MALEATE
     Indication: SCHIZOPHRENIA
     Dosage: 4 DF, BID
     Route: 060
     Dates: start: 201611
  2. ASENAPINE MALEATE - BP [Suspect]
     Active Substance: ASENAPINE MALEATE
     Dosage: 3 DF, BID
     Route: 060
     Dates: start: 201612

REACTIONS (6)
  - Suicidal ideation [Not Recovered/Not Resolved]
  - Dyspnoea [Unknown]
  - Asthenia [Not Recovered/Not Resolved]
  - Throat tightness [Unknown]
  - Hypoaesthesia [Unknown]
  - Headache [Unknown]
